FAERS Safety Report 6457309-X (Version None)
Quarter: 2009Q4

REPORT INFORMATION
  Report Type: 
  Country: None (occurrence: None)
  Receive Date: 20091125
  Receipt Date: 20091118
  Transmission Date: 20100525
  Serious: Yes (Other)
  Sender: FDA-Public Use
  Company Number: GXKR2009JP12589

PATIENT
  Age: 31 Year
  Sex: Female

DRUGS (5)
  1. VENLAFAXINE [Suspect]
     Indication: MAJOR DEPRESSION
     Dosage: 37.5 MG/DAY
     Route: 065
  2. VENLAFAXINE [Interacting]
     Dosage: 18.75 MG/DAY
     Route: 065
  3. CLOMIPRAMINE (NGX) [Interacting]
     Indication: MAJOR DEPRESSION
     Dosage: 20 MG/DAY
     Route: 065
  4. CLOMIPRAMINE (NGX) [Interacting]
     Dosage: UPTITRATED FROM 20 TO 40 MG/DAY
     Route: 065
  5. CLOMIPRAMINE (NGX) [Interacting]
     Dosage: 60 MG/DAY
     Route: 065

REACTIONS (12)
  - ABDOMINAL PAIN UPPER [None]
  - DELUSION [None]
  - DELUSION OF REFERENCE [None]
  - DEPRESSION [None]
  - DIZZINESS [None]
  - DRUG INTERACTION [None]
  - FEAR OF DEATH [None]
  - IMPAIRED WORK ABILITY [None]
  - NAUSEA [None]
  - PALPITATIONS [None]
  - PERSECUTORY DELUSION [None]
  - WITHDRAWAL SYNDROME [None]
